FAERS Safety Report 8870041 (Version 1)
Quarter: 2012Q4

REPORT INFORMATION
  Report Type: 
  Country: US (occurrence: US)
  Receive Date: 20121026
  Receipt Date: 20121026
  Transmission Date: 20130627
  Serious: No
  Sender: FDA-Public Use
  Company Number: US-AMGEN-USASP2012046146

PATIENT
  Age: 65 Year
  Sex: Female
  Weight: 58.96 kg

DRUGS (16)
  1. ENBREL [Suspect]
     Indication: PRODUCT USED FOR UNKNOWN INDICATION
     Dosage: 50 mg, qwk
     Route: 058
  2. SINGULAIR [Concomitant]
     Dosage: 10 mg, UNK
  3. METHOTREXATE [Concomitant]
     Dosage: 2.5 mg, UNK
  4. LOSARTAN + HIDROCLOROTIAZIDA [Concomitant]
     Dosage: 50-12.5
  5. METRONIDAZOL                       /00012501/ [Concomitant]
     Dosage: 0.75 %, UNK
  6. CLOBETASOL [Concomitant]
     Dosage: 0.05 %, UNK
  7. VITAMIN C                          /00008001/ [Concomitant]
     Dosage: 500 mg, UNK
  8. ADVIL                              /00044201/ [Concomitant]
     Dosage: 200 mg, UNK
  9. GLUCOSAMIN CHONDR [Concomitant]
     Dosage: 250-200
  10. LORATADINE [Concomitant]
     Dosage: 10-240 mg
  11. CALCIUM [Concomitant]
     Dosage: 500 mg, UNK
  12. FOLIC ACID [Concomitant]
     Dosage: UNK
  13. FLAXSEED OIL [Concomitant]
     Dosage: UNK
  14. QVAR [Concomitant]
     Dosage: 40 MCG
  15. VITAMIN D /00107901/ [Concomitant]
     Dosage: High Cap Potency
  16. MAXAIR [Concomitant]
     Dosage: 200 MCG

REACTIONS (1)
  - Nodule [Unknown]
